FAERS Safety Report 10253302 (Version 2)
Quarter: 2014Q2

REPORT INFORMATION
  Report Type: Spontaneous
  Country: US (occurrence: US)
  Receive Date: 20140623
  Receipt Date: 20140623
  Transmission Date: 20141212
  Serious: No
  Sender: FDA-Public Use
  Company Number: US-SHIONOGI, INC-2014000158

PATIENT
  Age: 60 Year
  Sex: Female
  Weight: 67.57 kg

DRUGS (1)
  1. OSPHENA [Suspect]
     Indication: PRODUCT USED FOR UNKNOWN INDICATION
     Dosage: UNK
     Route: 048
     Dates: start: 201310

REACTIONS (1)
  - Hair growth abnormal [Unknown]
